FAERS Safety Report 5293964-8 (Version None)
Quarter: 2007Q2

REPORT INFORMATION
  Report Type: 
  Country: None (occurrence: None)
  Receive Date: 20070405
  Receipt Date: 20070223
  Transmission Date: 20071010
  Serious: Yes (Other)
  Sender: FDA-Public Use
  Company Number: 4126

PATIENT
  Age: 13 Year
  Sex: Male
  Weight: 70.3075 kg

DRUGS (7)
  1. AMNESTEEM [Suspect]
     Indication: ACNE
     Dosage: 40 MG, BID, PO
     Route: 048
     Dates: start: 20061024, end: 20070223
  2. AMPICILLIN SODIUM [Concomitant]
  3. TAZAROTENE [Concomitant]
  4. BENZACLIN TOPICAL [Concomitant]
  5. CELEXA [Concomitant]
  6. STRATTERA [Concomitant]
  7. ADDERALL 10 [Concomitant]

REACTIONS (5)
  - ANGER [None]
  - BLOOD TRIGLYCERIDES INCREASED [None]
  - IRRITABILITY [None]
  - MOOD SWINGS [None]
  - PHYSICAL ASSAULT [None]
